FAERS Safety Report 4981372-6 (Version None)
Quarter: 2006Q2

REPORT INFORMATION
  Report Type: 
  Country: None (occurrence: None)
  Receive Date: 20060424
  Receipt Date: 20060414
  Transmission Date: 20061013
  Serious: Yes (Hospitalization)
  Sender: FDA-Public Use
  Company Number: US-MERCK-0604USA02707

PATIENT
  Age: 53 Year
  Sex: Male
  Weight: 95 kg

DRUGS (11)
  1. VIOXX [Suspect]
     Indication: BACK PAIN
     Route: 048
     Dates: start: 20020401, end: 20020701
  2. NORVASC [Concomitant]
     Route: 065
  3. HYDROCHLOROTHIAZIDE [Concomitant]
     Route: 065
  4. MONOPRIL [Concomitant]
     Route: 065
  5. NEURONTIN [Concomitant]
     Route: 065
  6. PRILOSEC [Concomitant]
     Route: 065
  7. VICODIN [Concomitant]
     Route: 065
  8. PLAVIX [Concomitant]
     Route: 065
  9. ZOCOR [Concomitant]
     Route: 065
  10. ASPIRIN [Concomitant]
     Route: 065
  11. COMBIVENT [Concomitant]
     Route: 065

REACTIONS (1)
  - MYOCARDIAL INFARCTION [None]
